FAERS Safety Report 24430884 (Version 1)
Quarter: 2024Q4

REPORT INFORMATION
  Report Type: Spontaneous
  Country: TR (occurrence: TR)
  Receive Date: 20241014
  Receipt Date: 20241014
  Transmission Date: 20250114
  Serious: Yes (Life-Threatening, Hospitalization, Other)
  Sender: AMGEN
  Company Number: TR-AMGEN-TURSP2024198215

PATIENT
  Age: 71 Year
  Sex: Female

DRUGS (2)
  1. FILGRASTIM [Suspect]
     Active Substance: FILGRASTIM
     Indication: Prophylaxis
     Dosage: 300 MICROGRAM, AFTER CHEMO (30 MILLION UNITS), 24 H LATER AFTER LAST DOSAGE OF VINFLUNIN)
     Route: 065
  2. VINFLUNINE [Suspect]
     Active Substance: VINFLUNINE
     Indication: Product used for unknown indication
     Dosage: 250 MILLIGRAM, FOR THREE DAYS,
     Route: 065

REACTIONS (3)
  - Posterior reversible encephalopathy syndrome [Recovered/Resolved]
  - Leukopenia [Unknown]
  - Thrombocytopenia [Unknown]
